FAERS Safety Report 8257595-X (Version None)
Quarter: 2012Q2

REPORT INFORMATION
  Report Type: 
  Country: None (occurrence: None)
  Receive Date: 20120403
  Receipt Date: 20120328
  Transmission Date: 20120825
  Serious: Yes (Other)
  Sender: FDA-Public Use
  Company Number: FR-B.I. PHARMACEUTICALS,INC./RIDGEFIELD-2012-FF-00377FF

PATIENT
  Sex: Male

DRUGS (2)
  1. TRIVASTAL [Suspect]
     Indication: PARKINSON'S DISEASE
     Dosage: 150 MG
     Route: 048
     Dates: start: 20040601, end: 20070401
  2. PRAMIPEXOLE DIHYDROCHLORIDE [Suspect]
     Indication: PARKINSON'S DISEASE
     Dosage: 1.05 MG
     Route: 048
     Dates: start: 20070301

REACTIONS (4)
  - HYPERSEXUALITY [None]
  - STEREOTYPY [None]
  - DEPENDENCE [None]
  - IMPULSE-CONTROL DISORDER [None]
